FAERS Safety Report 4848550-8 (Version None)
Quarter: 2005Q4

REPORT INFORMATION
  Report Type: 
  Country: None (occurrence: None)
  Receive Date: 20051206
  Receipt Date: 20051128
  Transmission Date: 20060501
  Serious: Yes (Death, Hospitalization)
  Sender: FDA-Public Use
  Company Number: 163-20785-05110144

PATIENT
  Age: 65 Year
  Sex: Female
  Weight: 160.5 kg

DRUGS (17)
  1. THALOMID [Suspect]
     Indication: MULTIPLE MYELOMA
     Dosage: 300 MG, DAILY, ORAL
     Route: 048
     Dates: start: 20030401, end: 20061001
  2. TAMBOCOR [Concomitant]
  3. LASIX [Concomitant]
  4. HUMULIN 70/30 [Concomitant]
  5. SENNA (SENNA) [Concomitant]
  6. PRILOSEC [Concomitant]
  7. OXYCODONE (OXYCODONE) [Concomitant]
  8. ALBUTEROL [Concomitant]
  9. ATROVENT [Concomitant]
  10. SEREVENT [Concomitant]
  11. FLOVENT (FLUTICASONE PRIOPIONATE) [Concomitant]
  12. PREDNISONE [Concomitant]
  13. K-DUR 10 [Concomitant]
  14. MULTIVITAMIN [Concomitant]
  15. ACETAMINOPHEN [Concomitant]
  16. PHENERGAN (PROMETHAZINE HYDROCHLORIDE) [Concomitant]
  17. COUMADIN [Concomitant]

REACTIONS (44)
  - ACIDOSIS [None]
  - ANAEMIA [None]
  - ANXIETY [None]
  - ATRIOVENTRICULAR BLOCK FIRST DEGREE [None]
  - BLOOD ALBUMIN DECREASED [None]
  - BLOOD CALCIUM INCREASED [None]
  - BLOOD PHOSPHORUS INCREASED [None]
  - BLOOD POTASSIUM INCREASED [None]
  - BLOOD URIC ACID INCREASED [None]
  - BODY TEMPERATURE DECREASED [None]
  - CELLULITIS [None]
  - COUGH [None]
  - CUSHINGOID [None]
  - DECREASED APPETITE [None]
  - DECUBITUS ULCER [None]
  - DEEP VEIN THROMBOSIS [None]
  - DISEASE PROGRESSION [None]
  - DRY MOUTH [None]
  - DYSPNOEA [None]
  - HAEMATOMA [None]
  - HAEMOGLOBIN DECREASED [None]
  - HYPOAESTHESIA [None]
  - HYPOXIA [None]
  - INTERNATIONAL NORMALISED RATIO INCREASED [None]
  - LABORATORY TEST ABNORMAL [None]
  - MALIGNANT NEOPLASM PROGRESSION [None]
  - MITRAL VALVE INCOMPETENCE [None]
  - MUCOUS MEMBRANE DISORDER [None]
  - MULTIPLE MYELOMA [None]
  - NAUSEA [None]
  - NEUTROPHIL COUNT DECREASED [None]
  - PITTING OEDEMA [None]
  - PLEURAL EFFUSION [None]
  - PROTEIN URINE PRESENT [None]
  - PULMONARY CONGESTION [None]
  - RED BLOOD CELLS URINE [None]
  - RENAL DISORDER [None]
  - RENAL FAILURE ACUTE [None]
  - RESPIRATORY FAILURE [None]
  - RESPIRATORY RATE INCREASED [None]
  - TRICUSPID VALVE INCOMPETENCE [None]
  - VOMITING [None]
  - WHITE BLOOD CELL COUNT INCREASED [None]
  - WHITE BLOOD CELLS URINE POSITIVE [None]
